FAERS Safety Report 19276003 (Version 1)
Quarter: 2021Q2

REPORT INFORMATION
  Report Type: Spontaneous
  Country: BR (occurrence: BR)
  Receive Date: 20210519
  Receipt Date: 20210519
  Transmission Date: 20210717
  Serious: Yes (Disabling)
  Sender: FDA-Public Use
  Company Number: BR-ANIPHARMA-2021-BR-000069

PATIENT
  Sex: Female

DRUGS (1)
  1. ATACAND HCT [Suspect]
     Active Substance: CANDESARTAN CILEXETIL\HYDROCHLOROTHIAZIDE
     Indication: PRODUCT USED FOR UNKNOWN INDICATION
     Dosage: 16/12.5 MG, TWO TABLETS DAILY
     Route: 048

REACTIONS (2)
  - Product storage error [Not Recovered/Not Resolved]
  - Balance disorder [Recovered/Resolved with Sequelae]
